FAERS Safety Report 9311338 (Version 2)
Quarter: 2013Q3

REPORT INFORMATION
  Report Type: Spontaneous
  Country: BE (occurrence: BE)
  Receive Date: 20130528
  Receipt Date: 20130808
  Transmission Date: 20140515
  Serious: Yes (Other)
  Sender: FDA-Public Use
  Company Number: BE-JNJFOC-20130507667

PATIENT
  Sex: Male
  Weight: 95 kg

DRUGS (5)
  1. XEPLION [Suspect]
     Indication: SCHIZOAFFECTIVE DISORDER
     Route: 030
  2. LORAMET [Concomitant]
     Dosage: 2 (UNIT UNSPECIFIED)
     Route: 065
  3. ALPRAZOLAM [Concomitant]
     Dosage: 2 (UNIT UNSPECIFIED)
     Route: 065
  4. ETUMINE [Concomitant]
     Route: 065
  5. PANTOMED [Concomitant]
     Dosage: 40 (UNIT UNSPECIFIED)
     Route: 065

REACTIONS (2)
  - Anaemia [Unknown]
  - Iron deficiency [Unknown]
